FAERS Safety Report 5429274-5 (Version None)
Quarter: 2007Q3

REPORT INFORMATION
  Report Type: 
  Country: None (occurrence: None)
  Receive Date: 20070829
  Receipt Date: 20070828
  Transmission Date: 20080115
  Serious: Yes (Death, Other)
  Sender: FDA-Public Use
  Company Number: US-PURDUE-USA_2007_0027727

PATIENT
  Sex: Male
  Weight: 100 kg

DRUGS (15)
  1. OXYCONTIN [Suspect]
     Indication: PAIN MANAGEMENT
     Dosage: 80 UNK, TID
     Dates: start: 19990414, end: 20011001
  2. UNIPHYL TABLETS [Concomitant]
     Dosage: 400 MG, DAILY
  3. IMDUR [Concomitant]
     Dosage: 30 MG, DAILY
  4. ZESTRIL [Concomitant]
     Dosage: 5 MG, DAILY
  5. LASIX [Concomitant]
     Dosage: 40 MG, BID
  6. DOPAMINE HCL [Concomitant]
  7. LIDOCAINE [Concomitant]
  8. VALIUM [Concomitant]
     Dosage: 5 MG, TID
  9. LOPRESSOR [Concomitant]
  10. CALAN [Concomitant]
     Dosage: 120 MG, DAILY
  11. NIFEREX [Concomitant]
     Dosage: UNK, DAILY
  12. COUMADIN [Concomitant]
     Dosage: 10 MG, DAILY
  13. NITROGLYCERIN [Concomitant]
     Dosage: UNK, DAILY
  14. OXYIR CAPSULES 5 MG [Concomitant]
     Dosage: 5 MG, PRN
  15. POTASSIUM CHLORIDE [Concomitant]

REACTIONS (2)
  - DRUG DEPENDENCE [None]
  - RENAL FAILURE ACUTE [None]
